FAERS Safety Report 4801694-9 (Version None)
Quarter: 2005Q4

REPORT INFORMATION
  Report Type: 
  Country: None (occurrence: None)
  Receive Date: 20051018
  Receipt Date: 20050902
  Transmission Date: 20060501
  Serious: Yes (Life-Threatening, Disabling)
  Sender: FDA-Public Use
  Company Number: FR-GLAXOSMITHKLINE-B0392943A

PATIENT
  Age: 74 Year
  Sex: Female
  Weight: 73 kg

DRUGS (2)
  1. DEROXAT [Suspect]
     Indication: DEPRESSION
     Route: 048
  2. SERETIDE [Suspect]
     Indication: ASTHMA
     Dosage: 2PUFF PER DAY
     Route: 055
     Dates: start: 20030101

REACTIONS (11)
  - ARTHRALGIA [None]
  - ASTHENIA [None]
  - CEREBRAL HAEMORRHAGE [None]
  - DIZZINESS [None]
  - DYSSTASIA [None]
  - ECCHYMOSIS [None]
  - HEADACHE [None]
  - INTESTINAL HAEMORRHAGE [None]
  - MYALGIA [None]
  - RECTAL HAEMORRHAGE [None]
  - VAGINAL HAEMORRHAGE [None]
